FAERS Safety Report 8060530-0 (Version None)
Quarter: 2012Q1

REPORT INFORMATION
  Report Type: 
  Country: None (occurrence: None)
  Receive Date: 20120120
  Receipt Date: 20120116
  Transmission Date: 20120608
  Serious: Yes (Hospitalization)
  Sender: FDA-Public Use
  Company Number: PHHO2010GB18258

PATIENT
  Sex: Male

DRUGS (4)
  1. DICLOFENAC SODIUM [Suspect]
     Indication: OSTEOARTHRITIS
     Dosage: 50 MG, TID
     Route: 048
     Dates: start: 20090702
  2. ASPIRIN [Concomitant]
     Indication: ATRIOVENTRICULAR BLOCK COMPLETE
  3. ASPIRIN [Concomitant]
     Indication: CARDIAC PACEMAKER INSERTION
     Dosage: 75 MG, QD
     Dates: start: 20041006
  4. ASPIRIN [Concomitant]
     Indication: ATRIAL FIBRILLATION

REACTIONS (1)
  - ATRIOVENTRICULAR BLOCK [None]
